FAERS Safety Report 9099179 (Version 1)
Quarter: 2013Q1

REPORT INFORMATION
  Report Type: Spontaneous
  Country: NL (occurrence: NL)
  Receive Date: 20130214
  Receipt Date: 20130214
  Transmission Date: 20140127
  Serious: Yes (Other)
  Sender: FDA-Public Use
  Company Number: NL-ROCHE-1190809

PATIENT
  Age: 25 Year
  Sex: Female

DRUGS (4)
  1. RIVOTRIL [Suspect]
     Indication: EPILEPSY
     Route: 048
     Dates: start: 20130204
  2. LOSEC (AUSTRALIA) [Concomitant]
  3. PULMICORT [Concomitant]
  4. PARACETAMOL [Concomitant]
     Route: 065

REACTIONS (1)
  - Epilepsy [Not Recovered/Not Resolved]
